FAERS Safety Report 8614359-2 (Version None)
Quarter: 2012Q3

REPORT INFORMATION
  Report Type: 
  Country: None (occurrence: None)
  Receive Date: 20120823
  Receipt Date: 20120813
  Transmission Date: 20120928
  Serious: Yes (Hospitalization, Disabling, Other)
  Sender: FDA-Public Use
  Company Number: US-009507513-1208USA005582

PATIENT

DRUGS (2)
  1. FOSAMAX [Suspect]
     Dosage: UNK
     Dates: start: 20100701, end: 20110301
  2. FOSAMAX [Suspect]
     Indication: OSTEOPOROSIS
     Dosage: UNK
     Dates: start: 20070601, end: 20081101

REACTIONS (2)
  - OPEN REDUCTION OF FRACTURE [None]
  - FEMUR FRACTURE [None]
